FAERS Safety Report 9505740 (Version 2)
Quarter: 2014Q1

REPORT INFORMATION
  Report Type: Spontaneous
  Country: US (occurrence: None)
  Receive Date: 20130220
  Receipt Date: 20130517
  Transmission Date: 20141002
  Serious: Yes (Other)
  Sender: FDA-Public Use
  Company Number: 1000040054

PATIENT
  Age: 59 Year
  Sex: Female
  Weight: 70 kg

DRUGS (4)
  1. VIIBRYD [Suspect]
     Indication: DEPRESSION
     Route: 048
     Dates: start: 20120502
  2. VIIBRYD [Suspect]
     Indication: ANXIETY
     Route: 048
     Dates: start: 20120502
  3. VIIBRYD [Suspect]
     Indication: DEPRESSION
     Route: 048
     Dates: end: 20121029
  4. VIIBRYD [Suspect]
     Indication: ANXIETY
     Route: 048
     Dates: end: 20121029

REACTIONS (1)
  - Serotonin syndrome [None]
